FAERS Safety Report 12958587 (Version 1)
Quarter: 2016Q4

REPORT INFORMATION
  Report Type: Spontaneous
  Country: US (occurrence: US)
  Receive Date: 20161121
  Receipt Date: 20161121
  Transmission Date: 20170207
  Serious: No
  Sender: FDA-Public Use
  Company Number: US-TEVA-659115USA

PATIENT
  Age: 48 Year
  Sex: Female
  Weight: 55.84 kg

DRUGS (1)
  1. BUDESONIDE. [Suspect]
     Active Substance: BUDESONIDE
     Indication: SINUS DISORDER
     Dosage: 0.5MG/2ML
     Route: 045
     Dates: start: 20160429

REACTIONS (6)
  - Contraindicated product administered [Unknown]
  - Cough [Unknown]
  - Drug administered in wrong device [Unknown]
  - Wrong technique in product usage process [Unknown]
  - Oropharyngeal pain [Unknown]
  - Product use issue [Unknown]

NARRATIVE: CASE EVENT DATE: 20160503
